FAERS Safety Report 6598660-2 (Version None)
Quarter: 2010Q1

REPORT INFORMATION
  Report Type: 
  Country: None (occurrence: None)
  Receive Date: 20100224
  Receipt Date: 20100215
  Transmission Date: 20100710
  Serious: Yes (Hospitalization)
  Sender: FDA-Public Use
  Company Number: FR-JNJFOC-20100207586

PATIENT
  Age: 83 Year
  Sex: Female

DRUGS (11)
  1. DURAGESIC-100 [Suspect]
     Indication: BACK PAIN
     Route: 062
  2. DURAGESIC-100 [Suspect]
     Route: 062
  3. DURAGESIC-100 [Suspect]
     Route: 062
  4. TIMOPTOL [Concomitant]
     Route: 047
  5. TEMESTA [Concomitant]
  6. PROPOFAN [Concomitant]
  7. COZAAR [Concomitant]
  8. SERESTA [Concomitant]
  9. SPAGULAX [Concomitant]
  10. BECOTIDE [Concomitant]
  11. CLONIDINE [Concomitant]

REACTIONS (3)
  - DYSPNOEA [None]
  - INCORRECT DOSE ADMINISTERED [None]
  - SOMNOLENCE [None]
